FAERS Safety Report 16445499 (Version 6)
Quarter: 2020Q1

REPORT INFORMATION
  Report Type: Spontaneous
  Country: US (occurrence: US)
  Receive Date: 20190618
  Receipt Date: 20200302
  Transmission Date: 20200409
  Serious: No
  Sender: FDA-Public Use
  Company Number: US-PFIZER INC-2017074872

PATIENT
  Age: 44 Year
  Sex: Female

DRUGS (16)
  1. LYRICA [Suspect]
     Active Substance: PREGABALIN
     Indication: SEIZURE
     Dosage: 125 MG, DAILY [2 CAPS BY MOUTH MORNING, 3 CAPS EVENING]
     Route: 048
  2. LYRICA [Suspect]
     Active Substance: PREGABALIN
     Dosage: 25 MG, 3X/DAY (EVERY MORNING)
     Route: 048
  3. LYRICA [Suspect]
     Active Substance: PREGABALIN
     Dosage: 75 MG, 1X/DAY (EVERY MORNING)
     Route: 048
  4. ZIANA [Concomitant]
     Active Substance: CLINDAMYCIN PHOSPHATE\TRETINOIN
     Indication: SKIN DISORDER
     Dosage: UNK
  5. LYRICA [Suspect]
     Active Substance: PREGABALIN
     Indication: EAR DISCOMFORT
     Dosage: 100 MG, 2X/DAY (FOR 15 DAYS)
     Route: 048
  6. LYRICA [Suspect]
     Active Substance: PREGABALIN
     Dosage: 50 MG, 1X/DAY (EVERY EVENING FOR 31 DAYS)
     Route: 048
  7. VALACYCLOVIR [Concomitant]
     Active Substance: VALACYCLOVIR HYDROCHLORIDE
     Indication: LIP DISORDER
     Dosage: UNK, AS NEEDED [1 2 TABS EVERY 12 HRS WHEN NEEDED]
  8. LYRICA [Suspect]
     Active Substance: PREGABALIN
     Indication: PARTIAL SEIZURES
     Dosage: 200 MG, 2X/DAY [4PM: 1; 12 AM: 1]
     Route: 048
  9. LYRICA [Suspect]
     Active Substance: PREGABALIN
     Dosage: 25 MG, 2X/DAY (EVERY EVENING FOR 15 DAYS)
     Route: 048
  10. LYRICA [Suspect]
     Active Substance: PREGABALIN
     Dosage: 100 MG, 1X/DAY (CAPSULE (100 MG TOTAL) EVERY EVENING)
     Route: 048
  11. LYRICA [Suspect]
     Active Substance: PREGABALIN
     Dosage: 100 MG, 2X/DAY (2 TIMES DAILY FOR 31 DAYS)
     Route: 048
  12. VIMPAT [Concomitant]
     Active Substance: LACOSAMIDE
     Indication: SEIZURE
     Dosage: 50 MG, 3X/DAY [4PM: 1; 10PM: 1; 12 AM: 1]
  13. LYRICA [Suspect]
     Active Substance: PREGABALIN
     Dosage: 25 MG, 2X/DAY (EVERY EVENING FOR 31 DAYS)
     Route: 048
  14. LYRICA [Suspect]
     Active Substance: PREGABALIN
     Dosage: 50 MG, 1X/DAY (EVERY EVENING FOR 15 DAYS)
     Route: 048
  15. AMITRIPTYLINE [Concomitant]
     Active Substance: AMITRIPTYLINE
     Indication: EAR DISORDER
     Dosage: 50 MG, 1X/DAY [25 MG; 12 AM: 2]
  16. BACLOFEN. [Concomitant]
     Active Substance: BACLOFEN
     Indication: EAR DISORDER
     Dosage: 10 MG, 2X/DAY [10 MG; 10PM: 1; 12 AM: 1]

REACTIONS (1)
  - Weight increased [Unknown]
